FAERS Safety Report 18341215 (Version 2)
Quarter: 2020Q4

REPORT INFORMATION
  Report Type: Spontaneous
  Country: OM (occurrence: US)
  Receive Date: 20201003
  Receipt Date: 20201107
  Transmission Date: 20210113
  Serious: Yes (Life-Threatening, Hospitalization, Other)
  Sender: FDA-Public Use
  Company Number: OM-MACLEODS PHARMACEUTICALS US LTD-MAC2020028237

PATIENT

DRUGS (2)
  1. METFORMIN [Suspect]
     Active Substance: METFORMIN HYDROCHLORIDE
     Dosage: 250 MILLIGRAM, BID, 40 MILLIGRAM/KILOGRAM, DOSE INCREASED
     Route: 065
  2. METFORMIN [Suspect]
     Active Substance: METFORMIN HYDROCHLORIDE
     Indication: STEM CELL THERAPY
     Dosage: 20 MILLIGRAM/KILOGRAM
     Route: 065

REACTIONS (8)
  - Hyperkalaemia [Recovered/Resolved]
  - Toxicity to various agents [Recovered/Resolved]
  - Lactic acidosis [Recovered/Resolved]
  - Hypotension [Recovered/Resolved]
  - Bradycardia [Recovered/Resolved]
  - Hyperglycaemia [Recovered/Resolved]
  - Arrhythmia [Recovered/Resolved]
  - Blood creatinine increased [Recovered/Resolved]
